FAERS Safety Report 19701401 (Version 1)
Quarter: 2021Q3

REPORT INFORMATION
  Report Type: Spontaneous
  Country: GB (occurrence: GB)
  Receive Date: 20210813
  Receipt Date: 20210813
  Transmission Date: 20211014
  Serious: Yes (Other)
  Sender: FDA-Public Use
  Company Number: GB-BIOGEN-2021BI01037613

PATIENT
  Age: 32 Year
  Sex: Male

DRUGS (1)
  1. TECFIDERA [Suspect]
     Active Substance: DIMETHYL FUMARATE
     Indication: PRODUCT USED FOR UNKNOWN INDICATION
     Dosage: MAY OR JUN 2020
     Route: 065
     Dates: start: 2020

REACTIONS (12)
  - Rectal haemorrhage [Unknown]
  - Oral candidiasis [Unknown]
  - Hyperhidrosis [Unknown]
  - Asthma [Unknown]
  - Abdominal pain [Unknown]
  - Alanine aminotransferase abnormal [Unknown]
  - Liver function test abnormal [Unknown]
  - Cytomegalovirus infection [Unknown]
  - Epstein-Barr virus infection [Unknown]
  - Alanine aminotransferase increased [Unknown]
  - Blood albumin increased [Unknown]
  - Hepatitis B [Unknown]

NARRATIVE: CASE EVENT DATE: 202103
